FAERS Safety Report 17081067 (Version 1)
Quarter: 2019Q4

REPORT INFORMATION
  Report Type: Spontaneous
  Country: US (occurrence: US)
  Receive Date: 20191030
  Receipt Date: 20191030
  Transmission Date: 20200122
  Serious: No
  Sender: FDA-Public Use
  Company Number: None

PATIENT
  Sex: Female

DRUGS (1)
  1. COPAXONE [Suspect]
     Active Substance: GLATIRAMER ACETATE
     Indication: MULTIPLE SCLEROSIS
     Route: 058
     Dates: start: 20190411

REACTIONS (6)
  - Fall [None]
  - Sluggishness [None]
  - Bladder disorder [None]
  - Muscular weakness [None]
  - Drug ineffective [None]
  - Dry skin [None]
